FAERS Safety Report 8342521-5 (Version None)
Quarter: 2012Q2

REPORT INFORMATION
  Report Type: 
  Country: None (occurrence: None)
  Receive Date: 20120508
  Receipt Date: 20120427
  Transmission Date: 20120825
  Serious: No
  Sender: FDA-Public Use
  Company Number: US-BIOGENIDEC-2012BI015040

PATIENT
  Sex: Female

DRUGS (4)
  1. TYSABRI [Suspect]
     Route: 042
     Dates: start: 20081121
  2. TYSABRI [Suspect]
     Route: 042
     Dates: start: 20081121
  3. TYSABRI [Suspect]
     Indication: MULTIPLE SCLEROSIS
     Route: 042
     Dates: start: 20070614, end: 20080811
  4. TYSABRI [Suspect]
     Indication: CROHN'S DISEASE
     Route: 042
     Dates: start: 20070614, end: 20080811

REACTIONS (7)
  - IRRITABLE BOWEL SYNDROME [None]
  - ASTHENIA [None]
  - DYSPHAGIA [None]
  - FALL [None]
  - MUSCLE DISORDER [None]
  - LARYNGEAL DISORDER [None]
  - GAIT DISTURBANCE [None]
